FAERS Safety Report 22174318 (Version 3)
Quarter: 2023Q2

REPORT INFORMATION
  Report Type: Spontaneous
  Country: CZ (occurrence: CZ)
  Receive Date: 20230405
  Receipt Date: 20230504
  Transmission Date: 20230722
  Serious: Yes (Other)
  Sender: FDA-Public Use
  Company Number: None

PATIENT
  Age: 45 Year
  Sex: Female

DRUGS (6)
  1. DUPIXENT [Suspect]
     Active Substance: DUPILUMAB
     Indication: Dermatitis atopic
     Dosage: 600 MG, 1X
     Route: 058
     Dates: start: 20191218, end: 20191218
  2. DUPIXENT [Suspect]
     Active Substance: DUPILUMAB
     Dosage: 300 MG, QOW
     Route: 058
  3. DESLORATADINE [Concomitant]
     Active Substance: DESLORATADINE
     Indication: Dust allergy
     Dosage: UNK
  4. DESLORATADINE [Concomitant]
     Active Substance: DESLORATADINE
     Indication: Seasonal allergy
  5. DESLORATADINE [Concomitant]
     Active Substance: DESLORATADINE
     Indication: Dust allergy
     Dosage: UNK
  6. DESLORATADINE [Concomitant]
     Active Substance: DESLORATADINE
     Indication: Seasonal allergy

REACTIONS (2)
  - Multiple sclerosis [Unknown]
  - Inappropriate schedule of product administration [Unknown]

NARRATIVE: CASE EVENT DATE: 20230116
